FAERS Safety Report 8236405-0 (Version None)
Quarter: 2012Q1

REPORT INFORMATION
  Report Type: 
  Country: None (occurrence: None)
  Receive Date: 20120327
  Receipt Date: 20120321
  Transmission Date: 20120608
  Serious: No
  Sender: FDA-Public Use
  Company Number: US-PFIZER INC-2012056784

PATIENT
  Sex: Female
  Weight: 74.83 kg

DRUGS (2)
  1. BENAZEPRIL [Concomitant]
     Indication: HYPERTENSION
     Dosage: 40 MG, DAILY
  2. RELPAX [Suspect]
     Indication: HEADACHE
     Dosage: 40 MG, DAILY
     Dates: start: 20120209, end: 20120209

REACTIONS (1)
  - FATIGUE [None]
